FAERS Safety Report 23524767 (Version 1)
Quarter: 2024Q1

REPORT INFORMATION
  Report Type: Spontaneous
  Country: BR (occurrence: BR)
  Receive Date: 20240215
  Receipt Date: 20240215
  Transmission Date: 20240410
  Serious: Yes (Other)
  Sender: FDA-Public Use
  Company Number: BR-002147023-NVSC2024BR029322

PATIENT
  Age: 62 Year
  Sex: Male
  Weight: 61 kg

DRUGS (4)
  1. RITALIN LA [Suspect]
     Active Substance: METHYLPHENIDATE HYDROCHLORIDE
     Indication: Attention deficit hyperactivity disorder
     Dosage: 10 MG, 1 TABLET
     Route: 048
     Dates: start: 202211
  2. METHYLPHENIDATE HYDROCHLORIDE [Suspect]
     Active Substance: METHYLPHENIDATE HYDROCHLORIDE
     Indication: Attention deficit hyperactivity disorder
     Dosage: 10 MG, 5 TABLETS-DAILY (3 TABLETS IN THE MORNING AND TWO TABLETS IN THE AFTERNOON)
     Route: 048
     Dates: start: 202301
  3. PROMETHAZINE [Concomitant]
     Active Substance: PROMETHAZINE HYDROCHLORIDE
     Indication: Insomnia
     Dosage: 25 MG, QD
     Route: 065
     Dates: start: 2018
  4. SERTRALINE [Concomitant]
     Active Substance: SERTRALINE HYDROCHLORIDE
     Indication: Anxiety
     Dosage: 2 DOSAGE FORM, QD
     Route: 065
     Dates: start: 2009

REACTIONS (8)
  - Cognitive disorder [Unknown]
  - Disturbance in attention [Unknown]
  - Anxiety [Unknown]
  - Nausea [Unknown]
  - Chest discomfort [Unknown]
  - Blood cholesterol abnormal [Unknown]
  - Product use in unapproved indication [Unknown]
  - Off label use [Unknown]

NARRATIVE: CASE EVENT DATE: 20230101
